FAERS Safety Report 7501986-9 (Version None)
Quarter: 2011Q2

REPORT INFORMATION
  Report Type: 
  Country: None (occurrence: None)
  Receive Date: 20110517
  Receipt Date: 20110507
  Transmission Date: 20111010
  Serious: Yes (Hospitalization)
  Sender: FDA-Public Use
  Company Number: 915605

PATIENT
  Age: 74 Year
  Sex: Male

DRUGS (1)
  1. METHOTREXATE [Suspect]
     Indication: RHEUMATOID ARTHRITIS
     Dosage: 7.5 MG/WEEK

REACTIONS (6)
  - FEBRILE NEUTROPENIA [None]
  - BLOOD UREA INCREASED [None]
  - CANDIDA SEPSIS [None]
  - BLOOD PRESSURE DIASTOLIC DECREASED [None]
  - ANAPLASTIC LARGE CELL LYMPHOMA T- AND NULL-CELL TYPES STAGE II [None]
  - BLOOD LACTATE DEHYDROGENASE INCREASED [None]
